FAERS Safety Report 14702012 (Version 2)
Quarter: 2018Q2

REPORT INFORMATION
  Report Type: Spontaneous
  Country: US (occurrence: US)
  Receive Date: 20180331
  Receipt Date: 20180518
  Transmission Date: 20180711
  Serious: No
  Sender: FDA-Public Use
  Company Number: US-JNJFOC-20180325972

PATIENT
  Age: 45 Year
  Sex: Female
  Weight: 74.84 kg

DRUGS (21)
  1. TOPAMAX [Suspect]
     Active Substance: TOPIRAMATE
     Indication: PETIT MAL EPILEPSY
     Route: 048
     Dates: start: 199806, end: 20090831
  2. DILANTIN [Concomitant]
     Active Substance: PHENYTOIN
     Indication: GENERALISED TONIC-CLONIC SEIZURE
     Route: 048
     Dates: start: 199101
  3. PHENYTOIN SODIUM. [Concomitant]
     Active Substance: PHENYTOIN SODIUM
     Indication: GENERALISED TONIC-CLONIC SEIZURE
     Route: 048
     Dates: start: 199406
  4. TOPIRAMATE. [Concomitant]
     Active Substance: TOPIRAMATE
     Indication: PETIT MAL EPILEPSY
     Route: 048
     Dates: start: 20090804, end: 2009
  5. TOPIRAMATE. [Concomitant]
     Active Substance: TOPIRAMATE
     Indication: GENERALISED TONIC-CLONIC SEIZURE
     Route: 048
     Dates: start: 2009, end: 20091010
  6. TOPIRAMATE. [Concomitant]
     Active Substance: TOPIRAMATE
     Indication: PETIT MAL EPILEPSY
     Route: 048
     Dates: start: 2009, end: 20091010
  7. TOPIRAMATE. [Concomitant]
     Active Substance: TOPIRAMATE
     Indication: SEIZURE
     Route: 048
     Dates: start: 2009, end: 20091010
  8. LAMICTAL [Concomitant]
     Active Substance: LAMOTRIGINE
     Indication: PETIT MAL EPILEPSY
     Route: 048
  9. TOPAMAX [Suspect]
     Active Substance: TOPIRAMATE
     Indication: SEIZURE
     Dosage: REDUCED BY 50 MG
     Route: 048
     Dates: start: 20090901, end: 20090930
  10. TOPIRAMATE. [Concomitant]
     Active Substance: TOPIRAMATE
     Indication: GENERALISED TONIC-CLONIC SEIZURE
     Route: 048
     Dates: start: 20090804, end: 2009
  11. KEPPRA [Concomitant]
     Active Substance: LEVETIRACETAM
     Indication: PULSELESS ELECTRICAL ACTIVITY
     Route: 048
     Dates: start: 2007
  12. LAMICTAL [Concomitant]
     Active Substance: LAMOTRIGINE
     Indication: PETIT MAL EPILEPSY
     Route: 048
     Dates: start: 199501
  13. TOPAMAX [Suspect]
     Active Substance: TOPIRAMATE
     Indication: SEIZURE
     Route: 048
     Dates: start: 20091001, end: 20091007
  14. TOPAMAX [Suspect]
     Active Substance: TOPIRAMATE
     Indication: SEIZURE
     Route: 048
     Dates: start: 20091010
  15. TOPAMAX [Suspect]
     Active Substance: TOPIRAMATE
     Indication: PETIT MAL EPILEPSY
     Dosage: REDUCED BY 50 MG
     Route: 048
     Dates: start: 20090901, end: 20090930
  16. TOPAMAX [Suspect]
     Active Substance: TOPIRAMATE
     Indication: PETIT MAL EPILEPSY
     Route: 048
     Dates: start: 20091010
  17. TOPAMAX [Suspect]
     Active Substance: TOPIRAMATE
     Indication: SEIZURE
     Route: 048
     Dates: start: 199806, end: 20090831
  18. TOPAMAX [Suspect]
     Active Substance: TOPIRAMATE
     Indication: PETIT MAL EPILEPSY
     Route: 048
     Dates: start: 20091001, end: 20091007
  19. TOPIRAMATE. [Concomitant]
     Active Substance: TOPIRAMATE
     Indication: SEIZURE
     Route: 048
     Dates: start: 20090804, end: 2009
  20. LAMICTAL [Concomitant]
     Active Substance: LAMOTRIGINE
     Indication: PETIT MAL EPILEPSY
     Route: 048
     Dates: start: 199501
  21. THYROXINE [Concomitant]
     Active Substance: LEVOTHYROXINE
     Indication: HYPOTHYROIDISM
     Route: 065
     Dates: start: 200602

REACTIONS (1)
  - Wrong technique in product usage process [Unknown]

NARRATIVE: CASE EVENT DATE: 201801
